FAERS Safety Report 18588277 (Version 2)
Quarter: 2020Q4

REPORT INFORMATION
  Report Type: Report from Study
  Country: None (occurrence: US)
  Receive Date: 20201208
  Receipt Date: 20201222
  Transmission Date: 20210114
  Serious: Yes (Other)
  Sender: FDA-Public Use
  Company Number: US-ABBVIE-20K-163-3671850-00

PATIENT
  Age: 76 Year
  Sex: Male
  Weight: 76.45 kg

DRUGS (33)
  1. MELATONIN [Concomitant]
     Active Substance: MELATONIN
     Indication: SLEEP DISORDER
  2. ANDROGEL [Concomitant]
     Active Substance: TESTOSTERONE
     Indication: OSTEOPOROSIS
  3. COCONUT OIL [Concomitant]
     Active Substance: COCONUT OIL
     Indication: SUPPLEMENTATION THERAPY
  4. MAGNESIUM CITRATE. [Concomitant]
     Active Substance: MAGNESIUM CITRATE
     Indication: GASTROINTESTINAL MOTILITY DISORDER
  5. MILK OF MAGNESIA [Concomitant]
     Active Substance: MAGNESIUM HYDROXIDE
     Indication: GASTROINTESTINAL MOTILITY DISORDER
  6. CARBIDOPA/LEVODOPA [Concomitant]
     Active Substance: CARBIDOPA\LEVODOPA
     Indication: PARKINSON^S DISEASE
  7. EXELON [Concomitant]
     Active Substance: RIVASTIGMINE TARTRATE
     Indication: DEMENTIA
  8. ELIDEL [Concomitant]
     Active Substance: PIMECROLIMUS
     Indication: SEBORRHOEIC DERMATITIS
  9. VITAMIN C [Concomitant]
     Active Substance: ASCORBIC ACID
     Indication: SUPPLEMENTATION THERAPY
  10. MULTIVITAMIN [Concomitant]
     Active Substance: VITAMINS
     Indication: SUPPLEMENTATION THERAPY
  11. FLUOCINONIDE. [Concomitant]
     Active Substance: FLUOCINONIDE
     Indication: SEBORRHOEIC DERMATITIS
  12. FINASTERIDE. [Concomitant]
     Active Substance: FINASTERIDE
     Indication: PROSTATOMEGALY
  13. VITAMIN B12 [Concomitant]
     Active Substance: CYANOCOBALAMIN
     Indication: SUPPLEMENTATION THERAPY
  14. BIOTIN [Concomitant]
     Active Substance: BIOTIN
     Indication: SUPPLEMENTATION THERAPY
  15. PROTHROMBIN COMPLEX CONCENTRATE NOS [Concomitant]
     Active Substance: COAGULATION FACTOR IX HUMAN\COAGULATION FACTOR VII HUMAN\COAGULATION FACTOR X HUMAN\PROTHROMBIN
     Indication: METABOLIC ABNORMALITY MANAGEMENT
  16. RENALIX [Concomitant]
     Indication: RENAL DISORDER PROPHYLAXIS
  17. TRULANCE [Concomitant]
     Active Substance: PLECANATIDE
     Indication: GASTROINTESTINAL MOTILITY DISORDER
  18. MITOXANA [Concomitant]
     Active Substance: IFOSFAMIDE
     Indication: SUPPLEMENTATION THERAPY
  19. COD LIVER OIL [Concomitant]
     Active Substance: COD LIVER OIL
     Indication: SUPPLEMENTATION THERAPY
  20. DUOPA [Suspect]
     Active Substance: CARBIDOPA\LEVODOPA
     Route: 050
     Dates: start: 20180320
  21. MIRALAX [Concomitant]
     Active Substance: POLYETHYLENE GLYCOL 3350
     Indication: GASTROINTESTINAL MOTILITY DISORDER
  22. PROLIA [Concomitant]
     Active Substance: DENOSUMAB
     Indication: OSTEOPOROSIS
  23. MAGNESIUM [Concomitant]
     Active Substance: MAGNESIUM
     Indication: SUPPLEMENTATION THERAPY
  24. BIOCIDIN [Concomitant]
     Indication: INFECTION PROPHYLAXIS
  25. D-MANNOSE [Concomitant]
     Indication: INFECTION PROPHYLAXIS
  26. SODIUM BICARBONATE. [Concomitant]
     Active Substance: SODIUM BICARBONATE
     Indication: HYPERSENSITIVITY
  27. GLUTATHIONE [Concomitant]
     Active Substance: GLUTATHIONE
     Indication: DETOXIFICATION
  28. BENEFIBER [Concomitant]
     Active Substance: STARCH, WHEAT
     Indication: SUPPLEMENTATION THERAPY
  29. DUOPA [Suspect]
     Active Substance: CARBIDOPA\LEVODOPA
     Indication: PARKINSON^S DISEASE
     Route: 050
     Dates: start: 20180117, end: 2018
  30. CLINDAMYCIN. [Concomitant]
     Active Substance: CLINDAMYCIN
     Indication: MILIARIA
  31. VITAMIN D [Concomitant]
     Active Substance: VITAMIN D NOS
     Indication: SUPPLEMENTATION THERAPY
  32. VITAMIN E [Concomitant]
     Active Substance: .ALPHA.-TOCOPHEROL
     Indication: SUPPLEMENTATION THERAPY
  33. ZINC. [Concomitant]
     Active Substance: ZINC
     Indication: SUPPLEMENTATION THERAPY

REACTIONS (22)
  - Muscle tightness [Not Recovered/Not Resolved]
  - Dysphagia [Not Recovered/Not Resolved]
  - Blood blister [Not Recovered/Not Resolved]
  - Fatigue [Recovering/Resolving]
  - Enteral nutrition [Unknown]
  - Muscle atrophy [Not Recovered/Not Resolved]
  - Malnutrition [Recovering/Resolving]
  - Swelling face [Recovered/Resolved]
  - Oral contusion [Recovered/Resolved]
  - Salivary hypersecretion [Recovering/Resolving]
  - Salivary hypersecretion [Recovering/Resolving]
  - Weight decreased [Recovering/Resolving]
  - Fluid intake reduced [Recovering/Resolving]
  - Productive cough [Recovering/Resolving]
  - Asthenia [Recovering/Resolving]
  - Somnolence [Recovering/Resolving]
  - Device infusion issue [Unknown]
  - Dropped head syndrome [Not Recovered/Not Resolved]
  - Drug dependence [Not Recovered/Not Resolved]
  - General physical health deterioration [Recovering/Resolving]
  - Device delivery system issue [Unknown]
  - Apraxia [Recovering/Resolving]

NARRATIVE: CASE EVENT DATE: 2018
